FAERS Safety Report 7442863-1 (Version None)
Quarter: 2011Q2

REPORT INFORMATION
  Report Type: 
  Country: None (occurrence: None)
  Receive Date: 20110425
  Receipt Date: 20110425
  Transmission Date: 20111010
  Serious: Yes (Death)
  Sender: FDA-Public Use
  Company Number: None

PATIENT
  Age: 59 Year
  Sex: Male

DRUGS (1)
  1. TREANDA [Suspect]
     Indication: LUNG CANCER METASTATIC
     Dosage: 226 MG IV (120 MG/M2)
     Dates: start: 20110301, end: 20110323

REACTIONS (1)
  - VENOUS OCCLUSION [None]
